FAERS Safety Report 8458995-5 (Version None)
Quarter: 2012Q2

REPORT INFORMATION
  Report Type: 
  Country: None (occurrence: None)
  Receive Date: 20120622
  Receipt Date: 20120614
  Transmission Date: 20120825
  Serious: Yes (Death)
  Sender: FDA-Public Use
  Company Number: DE-ROCHE-1072325

PATIENT
  Sex: Male
  Weight: 85 kg

DRUGS (4)
  1. CISPLATIN [Suspect]
     Indication: BRONCHIAL CARCINOMA
     Route: 042
     Dates: start: 20120313
  2. PEMETREXED DISODIUM [Suspect]
     Indication: BRONCHIAL CARCINOMA
     Route: 042
     Dates: start: 20120313
  3. PAMIDRONATE DISODIUM [Concomitant]
     Indication: HYPERCALCAEMIA
     Route: 042
     Dates: start: 20120329
  4. AVASTIN [Suspect]
     Indication: BRONCHIAL CARCINOMA
     Route: 042
     Dates: start: 20120313

REACTIONS (3)
  - SEPTIC SHOCK [None]
  - MULTI-ORGAN FAILURE [None]
  - PNEUMONIA [None]
